FAERS Safety Report 7353624-6 (Version None)
Quarter: 2011Q1

REPORT INFORMATION
  Report Type: 
  Country: None (occurrence: None)
  Receive Date: 20110303
  Receipt Date: 20100218
  Transmission Date: 20110831
  Serious: Yes (Other)
  Sender: FDA-Public Use
  Company Number: US-004069

PATIENT
  Age: 61 Year
  Sex: Female
  Weight: 80 kg

DRUGS (10)
  1. LOPERAMIDE HYDROCHLORIDE [Concomitant]
  2. ISOVUE-300 [Concomitant]
  3. LISINOPRIL [Concomitant]
  4. NORVASC [Concomitant]
  5. MICARDIS [Concomitant]
  6. ISOVUE-300 [Suspect]
     Indication: COMPUTERISED TOMOGRAM
     Dosage: 80ML ONCE INTRAVENOUS (NOT OTHERWISE SPECIFIED)
     Route: 042
     Dates: start: 20091229, end: 20091229
  7. ISOVUE-300 [Suspect]
     Indication: RENAL CELL CARCINOMA
     Dosage: 80ML ONCE INTRAVENOUS (NOT OTHERWISE SPECIFIED)
     Route: 042
     Dates: start: 20091229, end: 20091229
  8. AXITINIB (AXITINIB) [Suspect]
     Indication: RENAL CELL CARCINOMA
     Dosage: 5MG BID ORAL
     Route: 048
     Dates: start: 20090421
  9. ASPIRIN [Concomitant]
  10. VITAMIN D/CALCIUM CARBONATE (CALCIUM CARBONATE) [Concomitant]

REACTIONS (1)
  - HYPERSENSITIVITY [None]
